FAERS Safety Report 22186031 (Version 1)
Quarter: 2023Q2

REPORT INFORMATION
  Report Type: Spontaneous
  Country: US (occurrence: US)
  Receive Date: 20230407
  Receipt Date: 20230407
  Transmission Date: 20230722
  Serious: No
  Sender: FDA-Public Use
  Company Number: US-BRISTOL-MYERS SQUIBB COMPANY-2023-049529

PATIENT
  Age: 68 Year
  Sex: Female

DRUGS (1)
  1. REVLIMID [Suspect]
     Active Substance: LENALIDOMIDE
     Indication: Plasma cell myeloma
     Dosage: PATIENT TAKING 20 MG REVLIMID ONCE DAILY FOR 14 DAYS AND 7 DAYS OFF FOR MM
     Route: 048

REACTIONS (3)
  - Platelet count decreased [Unknown]
  - Gastroenteritis viral [Unknown]
  - Off label use [Unknown]
